FAERS Safety Report 9981454 (Version 3)
Quarter: 2014Q2

REPORT INFORMATION
  Report Type: Report from Study
  Country: US (occurrence: US)
  Receive Date: 20140307
  Receipt Date: 20140409
  Transmission Date: 20141212
  Serious: Yes (Other)
  Sender: FDA-Public Use
  Company Number: PHEH2012US000727

PATIENT
  Age: 57 Year
  Sex: Male

DRUGS (1)
  1. GILENYA [Suspect]
     Indication: MULTIPLE SCLEROSIS
     Dosage: 0.5 MG, QD
     Route: 048
     Dates: start: 20111125

REACTIONS (18)
  - Syncope [Unknown]
  - Trigeminal neuralgia [Unknown]
  - Muscular weakness [Unknown]
  - Fatigue [Unknown]
  - Oedema [Unknown]
  - Heart rate irregular [Unknown]
  - Urinary incontinence [Unknown]
  - Urine abnormality [Unknown]
  - Micturition urgency [Unknown]
  - Insomnia [Unknown]
  - Dysarthria [Unknown]
  - Neuralgia [Unknown]
  - Gait disturbance [Unknown]
  - Back pain [Unknown]
  - Vision blurred [Unknown]
  - Dizziness [Unknown]
  - Dyspnoea [Unknown]
  - Cough [Unknown]
